FAERS Safety Report 8232577-2 (Version None)
Quarter: 2012Q1

REPORT INFORMATION
  Report Type: 
  Country: None (occurrence: None)
  Receive Date: 20120321
  Receipt Date: 20120314
  Transmission Date: 20120608
  Serious: Yes (Other)
  Sender: FDA-Public Use
  Company Number: 1227926

PATIENT
  Age: 15 Year
  Sex: Female
  Weight: 60 kg

DRUGS (8)
  1. NEUPOGEN [Concomitant]
  2. HYDROMORPHONE HCL [Concomitant]
  3. PIPERACILLIN AND TAZOBACTAM [Suspect]
     Indication: PRODUCT USED FOR UNKNOWN INDICATION
     Dosage: SEE IMAGE
     Route: 042
  4. PIPERACILLIN AND TAZOBACTAM [Suspect]
     Indication: PRODUCT USED FOR UNKNOWN INDICATION
     Dosage: SEE IMAGE
     Route: 042
  5. (DOCUSATE SODIUM) [Concomitant]
  6. SULFAMETHOXAZOLE AND TRIMETHOPRIM [Concomitant]
  7. GENTAMICIN SULFATE IN SODIUM CHLORIDE 0.9% [Suspect]
     Indication: PRODUCT USED FOR UNKNOWN INDICATION
     Dosage: 100MG,1 EVERY Q 8 HOURS, INTRAVENOUS (NOT OTHERWISE SPECIFIED)
  8. VANCOMYCIN [Concomitant]

REACTIONS (2)
  - TUBULOINTERSTITIAL NEPHRITIS [None]
  - FEBRILE NEUTROPENIA [None]
